FAERS Safety Report 7767457-X (Version None)
Quarter: 2011Q3

REPORT INFORMATION
  Report Type: 
  Country: None (occurrence: None)
  Receive Date: 20110922
  Receipt Date: 20100813
  Transmission Date: 20111222
  Serious: No
  Sender: FDA-Public Use
  Company Number: US-ASTRAZENECA-2010SE38045

PATIENT
  Sex: Female
  Weight: 90.7 kg

DRUGS (11)
  1. KLONOPIN [Concomitant]
  2. METOPROLOL TARTRATE [Concomitant]
     Indication: HYPERTENSION
  3. DIPROFENEX SODIUM [Concomitant]
  4. SEROQUEL [Suspect]
     Indication: AGITATION
     Route: 048
     Dates: start: 20100401, end: 20100801
  5. ESTROVEN [Concomitant]
  6. METFORMIN HCL [Concomitant]
     Indication: DIABETES MELLITUS
  7. ENALOPRIL [Concomitant]
  8. FISH OIL [Concomitant]
     Indication: CARDIOVASCULAR EVENT PROPHYLAXIS
  9. SEROQUEL [Suspect]
     Indication: CRYING
     Route: 048
     Dates: start: 20100401, end: 20100801
  10. ASPIRIN [Concomitant]
  11. PLAVIX [Concomitant]
     Indication: CARDIOVASCULAR EVENT PROPHYLAXIS

REACTIONS (4)
  - ANGER [None]
  - DRUG DOSE OMISSION [None]
  - TENSION [None]
  - CRYING [None]
